FAERS Safety Report 4932803-9 (Version None)
Quarter: 2006Q1

REPORT INFORMATION
  Report Type: 
  Country: None (occurrence: None)
  Receive Date: 20060306
  Receipt Date: 20060227
  Transmission Date: 20060701
  Serious: Yes (Hospitalization)
  Sender: FDA-Public Use
  Company Number: FR-JNJFOC-20060300137

PATIENT
  Age: 31 Year
  Sex: Female

DRUGS (1)
  1. REMICADE [Suspect]
     Indication: CROHN'S DISEASE
     Dosage: TWO INFUSIONS.
     Route: 042

REACTIONS (5)
  - ARTHRALGIA [None]
  - ARTHROPATHY [None]
  - OEDEMA PERIPHERAL [None]
  - RASH [None]
  - TYPE IV HYPERSENSITIVITY REACTION [None]
